FAERS Safety Report 6457775-X (Version None)
Quarter: 2009Q4

REPORT INFORMATION
  Report Type: 
  Country: None (occurrence: None)
  Receive Date: 20091120
  Receipt Date: 20091112
  Transmission Date: 20100525
  Serious: Yes (Hospitalization)
  Sender: FDA-Public Use
  Company Number: 2009CD0256

PATIENT
  Age: 47 Year
  Sex: Female

DRUGS (11)
  1. CEDAX [Suspect]
     Indication: COUGH
     Dosage: 400 MG
     Dates: end: 20090801
  2. PRESTARIUM (PERINDOPRIL ERBUMINE) [Concomitant]
  3. TIALORID (MODURETIC) [Concomitant]
  4. POTASSIUM CHLORIDE [Concomitant]
  5. INHIBACE [Concomitant]
  6. CEFUROXIME [Concomitant]
  7. FORADIL [Concomitant]
  8. FLIXOTIDE (FLUTICASONE) [Concomitant]
  9. ATROVENT (IPRATROPOUM BROMIDE) [Concomitant]
  10. THIOCODIN (BUFLOMEDIL HYDROCHLORIDE) [Concomitant]
  11. CLARITHROMYCIN [Concomitant]

REACTIONS (4)
  - ABDOMINAL PAIN [None]
  - DEHYDRATION [None]
  - DIARRHOEA [None]
  - HYPERTENSION [None]
